FAERS Safety Report 10166981 (Version 2)
Quarter: 2014Q2

REPORT INFORMATION
  Report Type: Spontaneous
  Country: US (occurrence: US)
  Receive Date: 20140512
  Receipt Date: 20140611
  Transmission Date: 20141212
  Serious: No
  Sender: FDA-Public Use
  Company Number: US-PFIZER INC-2014129543

PATIENT
  Age: 31 Year
  Sex: Female
  Weight: 58.96 kg

DRUGS (2)
  1. PRISTIQ [Suspect]
     Indication: ANXIETY
     Dosage: 50 MG, DAILY
     Dates: end: 201405
  2. CELEBREX [Concomitant]
     Indication: SACROILIITIS
     Dosage: 200 MG, DAILY

REACTIONS (6)
  - Pyrexia [Unknown]
  - Nasopharyngitis [Unknown]
  - Anxiety [Unknown]
  - Skin disorder [Unknown]
  - Crying [Unknown]
  - Panic reaction [Unknown]
